FAERS Safety Report 8053553-9 (Version None)
Quarter: 2012Q1

REPORT INFORMATION
  Report Type: 
  Country: None (occurrence: None)
  Receive Date: 20120118
  Receipt Date: 20120110
  Transmission Date: 20120608
  Serious: Yes (Hospitalization, Other)
  Sender: FDA-Public Use
  Company Number: FR-MERCK-1201FRA00041

PATIENT
  Age: 55 Year
  Sex: Female
  Weight: 109 kg

DRUGS (9)
  1. JANUVIA [Suspect]
     Indication: TYPE 2 DIABETES MELLITUS
     Route: 048
  2. GLYBURIDE [Concomitant]
     Indication: TYPE 2 DIABETES MELLITUS
     Route: 048
  3. ESOMEPRAZOLE MAGNESIUM [Concomitant]
     Indication: PROPHYLAXIS
     Route: 048
  4. LINEZOLID [Concomitant]
     Route: 065
  5. ROSUVASTATIN CALCIUM [Concomitant]
     Indication: HYPERCHOLESTEROLAEMIA
     Route: 048
  6. PAROXETINE [Concomitant]
     Indication: DEPRESSION
     Route: 048
  7. ACETAMINOPHEN [Concomitant]
     Indication: MUSCULOSKELETAL PAIN
     Route: 048
  8. METFORMIN HYDROCHLORIDE [Concomitant]
     Indication: TYPE 2 DIABETES MELLITUS
     Route: 048
  9. ACETAMINOPHEN [Concomitant]
     Indication: PAIN
     Route: 048

REACTIONS (2)
  - MUSCULOSKELETAL PAIN [None]
  - OSTEOPOROSIS [None]
